FAERS Safety Report 16723682 (Version 1)
Quarter: 2019Q3

REPORT INFORMATION
  Report Type: Spontaneous
  Country: FR (occurrence: FR)
  Receive Date: 20190821
  Receipt Date: 20190821
  Transmission Date: 20191005
  Serious: Yes (Hospitalization)
  Sender: FDA-Public Use
  Company Number: FR-TEVA-2019-FR-1094165

PATIENT
  Age: 73 Year
  Sex: Male
  Weight: 78.5 kg

DRUGS (5)
  1. BIPRETERAX 5 MG/1,25 MG, COMPRIM? PELLICUL? [Suspect]
     Active Substance: INDAPAMIDE\PERINDOPRIL ARGININE
     Indication: HYPERTENSION
     Dosage: 5 MG PER DAY
     Route: 048
     Dates: end: 20190709
  2. ROSUVASTATINE [Concomitant]
     Active Substance: ROSUVASTATIN
     Indication: HYPERCHOLESTEROLAEMIA
     Dosage: 5 MG PER DAY
     Route: 048
  3. ATENOLOL. [Concomitant]
     Active Substance: ATENOLOL
     Indication: HYPERTENSION
     Dosage: 50 MG PER DAY
     Route: 048
  4. ALFUZOSINE (CHLORHYDRATE D^) [Concomitant]
     Active Substance: ALFUZOSIN HYDROCHLORIDE
     Indication: BENIGN PROSTATIC HYPERPLASIA
     Dosage: 10 MG PER DAY
     Route: 048
  5. LANSOPRAZOLE. [Suspect]
     Active Substance: LANSOPRAZOLE
     Indication: PROPHYLAXIS AGAINST GASTROINTESTINAL ULCER
     Dosage: 15 MG PER DAY
     Route: 048

REACTIONS (4)
  - Hyponatraemia [Recovered/Resolved]
  - Gait disturbance [Recovered/Resolved]
  - Tonic clonic movements [Recovered/Resolved]
  - Confusional state [Recovered/Resolved]

NARRATIVE: CASE EVENT DATE: 20190709
